FAERS Safety Report 10616685 (Version 1)
Quarter: 2014Q4

REPORT INFORMATION
  Report Type: Spontaneous
  Country: DE (occurrence: DE)
  Receive Date: 20141201
  Receipt Date: 20141201
  Transmission Date: 20150529
  Serious: Yes (Other)
  Sender: FDA-Public Use
  Company Number: DE-ACTAVIS-2014-25386

PATIENT
  Sex: Male
  Weight: 4 kg

DRUGS (5)
  1. FOLIO FORTE [Concomitant]
     Active Substance: FOLIC ACID\VITAMINS
     Indication: PROPHYLAXIS OF NEURAL TUBE DEFECT
     Dosage: 0.8 MG, DAILY
     Route: 064
     Dates: start: 20130920, end: 20140623
  2. NEMEXIN [Concomitant]
     Indication: ALCOHOLISM
     Dosage: 50 MG, DAILY
     Route: 064
     Dates: start: 20130920, end: 20131119
  3. VENLAFAXINE (UNKNOWN) [Suspect]
     Active Substance: VENLAFAXINE HYDROCHLORIDE
     Indication: BORDERLINE PERSONALITY DISORDER
     Dosage: 75 MG, DAILY
     Route: 064
     Dates: end: 20140623
  4. QUETIAPINE (UNKNOWN) [Suspect]
     Active Substance: QUETIAPINE
     Indication: BORDERLINE PERSONALITY DISORDER
     Dosage: 100 MG, DAILY
     Route: 064
     Dates: start: 20130920, end: 20140623
  5. VENLAFAXINE (UNKNOWN) [Suspect]
     Active Substance: VENLAFAXINE HYDROCHLORIDE
     Dosage: 225 MG, UNK
     Route: 064
     Dates: start: 20130920

REACTIONS (3)
  - Foetal exposure during pregnancy [Unknown]
  - Respiratory disorder neonatal [Recovered/Resolved]
  - Exposure via father [Unknown]

NARRATIVE: CASE EVENT DATE: 20140623
